FAERS Safety Report 8740910 (Version 2)
Quarter: 2013Q4

REPORT INFORMATION
  Report Type: Spontaneous
  Country: US (occurrence: US)
  Receive Date: 20120824
  Receipt Date: 20131031
  Transmission Date: 20140711
  Serious: Yes (Hospitalization, Other)
  Sender: FDA-Public Use
  Company Number: US-009507513-2011SP050148

PATIENT
  Age: 22 Year
  Sex: Female
  Weight: 90.72 kg

DRUGS (2)
  1. NUVARING [Suspect]
     Indication: CONTRACEPTION
     Dosage: 1 DF, QM
     Route: 067
     Dates: start: 20080428, end: 200910
  2. NUVARING [Suspect]
     Indication: MENSTRUAL CYCLE MANAGEMENT

REACTIONS (6)
  - Pulmonary embolism [Unknown]
  - Anxiety [Unknown]
  - Renal cyst [Unknown]
  - Coital bleeding [Unknown]
  - Fatigue [Unknown]
  - Dyspareunia [Unknown]
